FAERS Safety Report 5175291-2 (Version None)
Quarter: 2006Q4

REPORT INFORMATION
  Report Type: 
  Country: None (occurrence: None)
  Receive Date: 20061211
  Receipt Date: 20061211
  Transmission Date: 20070319
  Serious: Yes (Hospitalization)
  Sender: FDA-Public Use
  Company Number: None

PATIENT
  Sex: Female
  Weight: 70.3075 kg

DRUGS (1)
  1. NITROFURANTOIN [Suspect]
     Indication: CYSTITIS
     Dosage: 100MGM 1 PO
     Route: 048
     Dates: start: 20061207, end: 20061207

REACTIONS (2)
  - CHEST PAIN [None]
  - DRUG HYPERSENSITIVITY [None]
